FAERS Safety Report 23590772 (Version 1)
Quarter: 2024Q1

REPORT INFORMATION
  Report Type: Spontaneous
  Country: US (occurrence: US)
  Receive Date: 20240304
  Receipt Date: 20240304
  Transmission Date: 20240410
  Serious: No
  Sender: FDA-Public Use
  Company Number: US-BRISTOL-MYERS SQUIBB COMPANY-2024-028674

PATIENT
  Age: 9 Year
  Sex: Female

DRUGS (1)
  1. ORENCIA [Suspect]
     Active Substance: ABATACEPT
     Indication: Juvenile idiopathic arthritis
     Dosage: STRENGTH: 50MG/0.4ML
     Route: 058
     Dates: start: 202310

REACTIONS (2)
  - Joint swelling [Unknown]
  - Arthralgia [Unknown]
